FAERS Safety Report 5219353-X (Version None)
Quarter: 2007Q1

REPORT INFORMATION
  Report Type: 
  Country: None (occurrence: None)
  Receive Date: 20070125
  Receipt Date: 20070112
  Transmission Date: 20070707
  Serious: Yes (Hospitalization, Other)
  Sender: FDA-Public Use
  Company Number: FR-ELI_LILLY_AND_COMPANY-FR200701002943

PATIENT
  Age: 57 Year
  Sex: Female

DRUGS (11)
  1. OPTRUMA [Suspect]
     Indication: OSTEOPOROSIS
     Dosage: 60 MG, DAILY (1/D)
     Route: 048
     Dates: end: 20060904
  2. KETOPROFEN [Concomitant]
     Indication: BACK PAIN
     Dosage: 100 MG, DAILY (1/D)
     Route: 030
     Dates: start: 20060903, end: 20060903
  3. PROPOFOL [Concomitant]
     Indication: BACK PAIN
     Dosage: 3 D/F, DAILY (1/D)
     Dates: start: 20060901, end: 20060904
  4. GAVISCON [Concomitant]
     Indication: OESOPHAGITIS
     Dosage: 3 D/F, DAILY (1/D)
     Dates: end: 20060904
  5. ENDOTELON [Concomitant]
     Indication: VARICOSE VEIN
     Dosage: 150 MG, 2/D
     Dates: end: 20060904
  6. CHONDROSULF [Concomitant]
     Indication: ARTHROPATHY
     Dosage: 400 MG, 2/D
     Dates: end: 20060904
  7. OMEPRAZOLE [Concomitant]
     Dosage: 20 MG, DAILY (1/D)
  8. STALEVO 100 [Concomitant]
     Dosage: UNK, 4/D
  9. MODOPAR [Concomitant]
     Dosage: 125 MG, 2/D
  10. SIFROL [Concomitant]
     Dosage: 0.7 MG, 3/D
  11. FORLAX [Concomitant]
     Dates: end: 20060904

REACTIONS (3)
  - BACK PAIN [None]
  - DERMATITIS BULLOUS [None]
  - HEPATOCELLULAR DAMAGE [None]
